FAERS Safety Report 8614442-1 (Version None)
Quarter: 2012Q3

REPORT INFORMATION
  Report Type: 
  Country: None (occurrence: None)
  Receive Date: 20120823
  Receipt Date: 20120817
  Transmission Date: 20120928
  Serious: Yes (Other)
  Sender: FDA-Public Use
  Company Number: PHHY2012AU067158

PATIENT
  Sex: Male

DRUGS (7)
  1. IMATINIB MESYLATE [Suspect]
     Indication: CHRONIC MYELOID LEUKAEMIA
     Dosage: 400 MG, DAILY
     Dates: start: 20111219, end: 20120625
  2. ALLOPURINOL [Concomitant]
     Dosage: UNK UKN, UNK
  3. KARVEA [Concomitant]
     Dosage: UNK UKN, UNK
  4. ASPIRIN [Concomitant]
     Dosage: UNK UKN, UNK
  5. LIPITOR [Concomitant]
     Dosage: UNK UKN, UNK
  6. FUROSEMIDE [Concomitant]
     Dosage: UNK UKN, UNK
  7. WARFARIN SODIUM [Concomitant]
     Dosage: UNK UKN, UNK

REACTIONS (2)
  - PNEUMONITIS [None]
  - DYSPNOEA [None]
